FAERS Safety Report 19263017 (Version 2)
Quarter: 2024Q2

REPORT INFORMATION
  Report Type: Report from Study
  Country: CA (occurrence: CA)
  Receive Date: 20210517
  Receipt Date: 20240621
  Transmission Date: 20240716
  Serious: Yes (Other)
  Sender: FDA-Public Use
  Company Number: CA-CELLTRION INC.-2021CA006441

PATIENT

DRUGS (16)
  1. RITUXIMAB [Suspect]
     Active Substance: RITUXIMAB
     Indication: Rheumatoid arthritis
     Dosage: 1000 MILLIGRAM
     Route: 041
  2. DIPHENHYDRAMINE HYDROCHLORIDE [Suspect]
     Active Substance: DIPHENHYDRAMINE HYDROCHLORIDE
     Indication: Premedication
     Dosage: 50 MILLIGRAM
     Route: 048
  3. HYDROCHLOROTHIAZIDE\VALSARTAN [Suspect]
     Active Substance: HYDROCHLOROTHIAZIDE\VALSARTAN
     Indication: Hypertension
     Route: 065
  4. ACETAMINOPHEN [Concomitant]
     Active Substance: ACETAMINOPHEN
     Indication: Premedication
     Dosage: 650 MILLIGRAM
     Route: 048
  5. AVALIDE [Concomitant]
     Active Substance: HYDROCHLOROTHIAZIDE\IRBESARTAN
  6. AZATHIOPRINE [Concomitant]
     Active Substance: AZATHIOPRINE
  7. CELEBREX [Concomitant]
     Active Substance: CELECOXIB
  8. CYANOCOBALAMIN [Concomitant]
     Active Substance: CYANOCOBALAMIN
  9. DICLOFENAC [Concomitant]
     Active Substance: DICLOFENAC
  10. HYDROXYCHLOROQUINE SULFATE [Concomitant]
     Active Substance: HYDROXYCHLOROQUINE SULFATE
  11. LOSEC [Concomitant]
     Active Substance: OMEPRAZOLE
  12. METHYLPREDNISOLONE [Concomitant]
     Active Substance: METHYLPREDNISOLONE
     Indication: Premedication
     Dosage: 100 MILLIGRAM
     Route: 042
  13. PREDNISONE [Concomitant]
     Active Substance: PREDNISONE
  14. VALSARTAN [Concomitant]
     Active Substance: VALSARTAN
  15. XARELTO [Concomitant]
     Active Substance: RIVAROXABAN
  16. ALEVE [Concomitant]
     Active Substance: NAPROXEN SODIUM

REACTIONS (7)
  - Dehydration [Recovered/Resolved]
  - Somnolence [Recovered/Resolved]
  - Weight decreased [Recovered/Resolved]
  - Oxygen saturation decreased [Recovered/Resolved]
  - Dizziness [Recovered/Resolved]
  - Drug hypersensitivity [Recovered/Resolved]
  - Lower respiratory tract infection [Recovered/Resolved]
